FAERS Safety Report 16067672 (Version 1)
Quarter: 2019Q2

REPORT INFORMATION
  Report Type: Spontaneous
  Country: US (occurrence: US)
  Receive Date: 20190313
  Receipt Date: 20190313
  Transmission Date: 20190711
  Serious: Yes (Death)
  Sender: FDA-Public Use
  Company Number: None

PATIENT
  Sex: Female

DRUGS (2)
  1. NEUPOGEN [Suspect]
     Active Substance: FILGRASTIM
     Indication: BREAST CANCER
     Dosage: ?          OTHER FREQUENCY:FOR 2 DAYS;?
     Route: 058
     Dates: start: 20181024, end: 20190110
  2. CAPECITABINE. [Suspect]
     Active Substance: CAPECITABINE
     Indication: BREAST CANCER
     Dosage: ?          OTHER FREQUENCY:Q12HR 7ON 7 OFF;?
     Route: 048
     Dates: start: 20180926, end: 20181024

REACTIONS (1)
  - Death [None]
